FAERS Safety Report 4599535-0 (Version None)
Quarter: 2005Q1

REPORT INFORMATION
  Report Type: 
  Country: None (occurrence: None)
  Receive Date: 20050307
  Receipt Date: 20050128
  Transmission Date: 20050727
  Serious: Yes (Life-Threatening, Hospitalization, Other)
  Sender: FDA-Public Use
  Company Number: US-GLAXOSMITHKLINE-A0542723A

PATIENT
  Age: 50 Year
  Sex: Male
  Weight: 107.3 kg

DRUGS (3)
  1. COREG [Suspect]
     Route: 048
     Dates: start: 20050113, end: 20050124
  2. LIPITOR [Concomitant]
     Route: 048
  3. ZANTAC [Concomitant]
     Route: 048

REACTIONS (6)
  - BLOOD LACTATE DEHYDROGENASE INCREASED [None]
  - BLOOD LACTIC ACID INCREASED [None]
  - HAEMOLYTIC ANAEMIA [None]
  - HAEMORRHAGE [None]
  - IDIOPATHIC THROMBOCYTOPENIC PURPURA [None]
  - RED BLOOD CELL SCHISTOCYTES PRESENT [None]
